FAERS Safety Report 7432142-0 (Version None)
Quarter: 2011Q2

REPORT INFORMATION
  Report Type: 
  Country: None (occurrence: None)
  Receive Date: 20110413
  Receipt Date: 20110405
  Transmission Date: 20111010
  Serious: Yes (Other)
  Sender: FDA-Public Use
  Company Number: 115170

PATIENT
  Age: 14 Year
  Sex: Male
  Weight: 56.6996 kg

DRUGS (1)
  1. METHOTREXATE [Suspect]
     Indication: ARTHRITIS
     Dosage: 1ML/ONCE A WEEK
     Dates: start: 20110326, end: 20110402

REACTIONS (3)
  - POOR QUALITY DRUG ADMINISTERED [None]
  - MEDICATION ERROR [None]
  - PRODUCT LABEL ISSUE [None]
